FAERS Safety Report 20315751 (Version 1)
Quarter: 2022Q1

REPORT INFORMATION
  Report Type: Spontaneous
  Country: US (occurrence: None)
  Receive Date: 20220110
  Receipt Date: 20220110
  Transmission Date: 20220424
  Serious: No
  Sender: FDA-Public Use
  Company Number: US-ROCHE-2802108

PATIENT
  Sex: Female

DRUGS (2)
  1. RITUXAN [Suspect]
     Active Substance: RITUXIMAB
     Indication: Kidney transplant rejection
     Route: 042
     Dates: start: 20210310
  2. SOLU-MEDROL [Concomitant]
     Active Substance: METHYLPREDNISOLONE SODIUM SUCCINATE
     Indication: Premedication
     Dosage: *1
     Route: 042
     Dates: start: 20210310

REACTIONS (2)
  - Product preparation error [Unknown]
  - No adverse event [Unknown]
